FAERS Safety Report 14409094 (Version 1)
Quarter: 2018Q1

REPORT INFORMATION
  Report Type: Spontaneous
  Country: FR (occurrence: FR)
  Receive Date: 20180119
  Receipt Date: 20180119
  Transmission Date: 20180509
  Serious: Yes (Other)
  Sender: FDA-Public Use
  Company Number: FR-MERCK KGAA-2040341

PATIENT
  Age: 72 Year
  Sex: Female
  Weight: 82 kg

DRUGS (2)
  1. LEVOTHYROX 75 [Suspect]
     Active Substance: LEVOTHYROXINE
     Route: 048
     Dates: start: 20170412
  2. NOVOTHYROX [Suspect]
     Active Substance: LEVOTHYROXINE SODIUM
     Indication: PRODUCT USED FOR UNKNOWN INDICATION
     Route: 048
     Dates: start: 20170412

REACTIONS (4)
  - Diffuse alopecia [Unknown]
  - Balance disorder [Unknown]
  - Insomnia [Unknown]
  - Fatigue [Unknown]

NARRATIVE: CASE EVENT DATE: 201705
